FAERS Safety Report 18252265 (Version 1)
Quarter: 2020Q3

REPORT INFORMATION
  Report Type: Spontaneous
  Country: US (occurrence: US)
  Receive Date: 20200909
  Receipt Date: 20200909
  Transmission Date: 20201103
  Serious: No
  Sender: FDA-Public Use
  Company Number: None

PATIENT
  Age: 70 Year
  Sex: Male
  Weight: 111.13 kg

DRUGS (1)
  1. CLONIDINE HCL TABLETS USP [Suspect]
     Active Substance: CLONIDINE HYDROCHLORIDE
     Indication: HYPERTENSION
     Route: 048
     Dates: start: 20200630, end: 20200831

REACTIONS (2)
  - Dry throat [None]
  - Dry eye [None]

NARRATIVE: CASE EVENT DATE: 20200831
